FAERS Safety Report 21299826 (Version 8)
Quarter: 2023Q1

REPORT INFORMATION
  Report Type: Spontaneous
  Country: US (occurrence: US)
  Receive Date: 20220906
  Receipt Date: 20230222
  Transmission Date: 20230418
  Serious: Yes (Hospitalization, Other)
  Sender: FDA-Public Use
  Company Number: US-Calliditas-2022CAL00293

PATIENT
  Age: 60 Year
  Sex: Male

DRUGS (17)
  1. TARPEYO [Suspect]
     Active Substance: BUDESONIDE
     Indication: IgA nephropathy
     Dosage: 16 MG (4 MG CAPSULES) ONCE DAILY
     Route: 048
     Dates: start: 20220728
  2. LASIX [Concomitant]
     Active Substance: FUROSEMIDE
     Dosage: INCREASED FROM 2 MG TO 4 MG DAILY
  3. INSULIN NOS [Concomitant]
     Active Substance: INSULIN NOS
     Indication: Blood glucose increased
  4. LANTUS [Concomitant]
     Active Substance: INSULIN GLARGINE
     Indication: Blood glucose increased
  5. ATORVASTATIN [Concomitant]
     Active Substance: ATORVASTATIN
     Indication: Blood glucose increased
  6. CIPROFLOXACIN [Concomitant]
     Active Substance: CIPROFLOXACIN
     Indication: Blood glucose increased
  7. CLONIDINE [Concomitant]
     Active Substance: CLONIDINE
     Indication: Blood glucose increased
  8. CLOPIDOGREL [Concomitant]
     Active Substance: CLOPIDOGREL BISULFATE
     Indication: Blood glucose increased
  9. DOXAZOSIN [Concomitant]
     Active Substance: DOXAZOSIN MESYLATE
     Indication: Blood glucose increased
  10. LABETALOL [Concomitant]
     Active Substance: LABETALOL\LABETALOL HYDROCHLORIDE
     Indication: Blood glucose increased
  11. MYCOPHENOLATE MOFETIL [Concomitant]
     Active Substance: MYCOPHENOLATE MOFETIL
     Indication: Blood glucose increased
  12. NIFEDIPINE [Concomitant]
     Active Substance: NIFEDIPINE
     Indication: Blood glucose increased
  13. NYSTATIN [Concomitant]
     Active Substance: NYSTATIN
     Indication: Blood glucose increased
  14. PREDNISONE [Concomitant]
     Active Substance: PREDNISONE
  15. TACROLIMUS [Concomitant]
     Active Substance: TACROLIMUS
  16. TRADJENTA [Concomitant]
     Active Substance: LINAGLIPTIN
  17. LOSARTAN [Concomitant]
     Active Substance: LOSARTAN

REACTIONS (13)
  - Fluid retention [Not Recovered/Not Resolved]
  - Gait inability [Unknown]
  - Oedema [Unknown]
  - Memory impairment [Recovered/Resolved]
  - Dyspnoea [Unknown]
  - Dizziness [Recovered/Resolved]
  - Blood glucose increased [Unknown]
  - End stage renal disease [Not Recovered/Not Resolved]
  - Hypertension [Unknown]
  - Skin ulcer [Not Recovered/Not Resolved]
  - Product dose omission issue [Unknown]
  - Product use issue [Unknown]
  - Dialysis [Unknown]

NARRATIVE: CASE EVENT DATE: 20220728
